FAERS Safety Report 9010933 (Version 1)
Quarter: 2013Q1

REPORT INFORMATION
  Report Type: Spontaneous
  Country: US (occurrence: US)
  Receive Date: 20130109
  Receipt Date: 20130109
  Transmission Date: 20140127
  Serious: Yes (Death)
  Sender: FDA-Public Use
  Company Number: US-JNJFOC-20130102451

PATIENT
  Sex: 0

DRUGS (16)
  1. DURAGESIC [Suspect]
     Indication: PROCEDURAL PAIN
     Route: 062
  2. TYLENOL WITH CODEINE [Suspect]
     Indication: PROCEDURAL PAIN
     Route: 048
  3. ACETAMINOPHEN [Suspect]
     Route: 065
  4. ACETAMINOPHEN [Suspect]
     Indication: PROCEDURAL PAIN
     Route: 065
  5. HYDROMORPHONE [Suspect]
     Indication: PROCEDURAL PAIN
     Route: 065
  6. OXYCODONE [Suspect]
     Indication: PROCEDURAL PAIN
     Route: 065
  7. ANTIHISTAMINE [Suspect]
     Indication: PRODUCT USED FOR UNKNOWN INDICATION
     Route: 065
  8. ANTIEMETICS AND ANTINAUSEANTS [Suspect]
     Indication: PRODUCT USED FOR UNKNOWN INDICATION
     Route: 065
  9. OXYCONTIN [Suspect]
     Indication: PRODUCT USED FOR UNKNOWN INDICATION
     Route: 065
  10. HYDROCODONE [Suspect]
     Indication: PRODUCT USED FOR UNKNOWN INDICATION
     Route: 065
  11. NSAID^S [Suspect]
     Indication: PRODUCT USED FOR UNKNOWN INDICATION
     Route: 065
  12. GABAPENTIN [Suspect]
     Indication: PRODUCT USED FOR UNKNOWN INDICATION
     Route: 065
  13. TRICYCLIC ANTIDEPRESSANTS [Suspect]
     Indication: PRODUCT USED FOR UNKNOWN INDICATION
     Route: 065
  14. SEROTONIN [Suspect]
     Indication: PRODUCT USED FOR UNKNOWN INDICATION
     Route: 065
  15. BENZODIAZEPINES NOS [Suspect]
     Indication: PRODUCT USED FOR UNKNOWN INDICATION
     Route: 065
  16. MORPHINE [Suspect]
     Indication: PROCEDURAL PAIN
     Route: 065

REACTIONS (2)
  - Respiratory disorder [Fatal]
  - Procedural pain [Unknown]
